FAERS Safety Report 7737289-7 (Version None)
Quarter: 2011Q3

REPORT INFORMATION
  Report Type: 
  Country: None (occurrence: None)
  Receive Date: 20110902
  Receipt Date: 20110822
  Transmission Date: 20111222
  Serious: Yes (Life-Threatening, Hospitalization)
  Sender: FDA-Public Use
  Company Number: TCI2011A00871

PATIENT
  Age: 68 Year
  Sex: Female

DRUGS (5)
  1. ACTOS [Suspect]
     Indication: TYPE 2 DIABETES MELLITUS
     Dosage: 30 MG (30 MG,1 D) PER ORAL
     Route: 048
     Dates: start: 20080418, end: 20090515
  2. BISOPROLOL FUMARATE [Concomitant]
  3. SULFONAMIDES, UREA DERIVATIVES [Concomitant]
  4. ALLOPURINOL [Concomitant]
  5. DIOVAN [Concomitant]

REACTIONS (1)
  - ATRIAL FIBRILLATION [None]
